FAERS Safety Report 4355084-6 (Version None)
Quarter: 2004Q2

REPORT INFORMATION
  Report Type: 
  Country: None (occurrence: None)
  Receive Date: 20040504
  Receipt Date: 20040420
  Transmission Date: 20050107
  Serious: Yes (Hospitalization)
  Sender: FDA-Public Use
  Company Number: 03P-163-0215388

PATIENT
  Age: 53 Year
  Sex: Female
  Weight: 81.6475 kg

DRUGS (12)
  1. VICODIN ES 7.5 MG/750 MG (VICODIN ES) (HYDROCODONE/ACETAMINOPHEN)  (HY [Suspect]
     Indication: JOINT INJURY
     Dosage: 750 MG, 3 IN 1 D, PER ORAL
     Route: 048
     Dates: start: 19990101
  2. TRICOR [Suspect]
     Indication: BLOOD TRIGLYCERIDES INCREASED
     Dosage: 1 IN 1 D, PER ORAL
     Route: 048
     Dates: start: 20010810, end: 20010813
  3. PROPRANOLOL HYDROCHLORIDE [Concomitant]
  4. PEMALOR [Concomitant]
  5. CIMETIDINE HCL [Concomitant]
  6. ALPRAZOLAM [Concomitant]
  7. ATORVASTATIN CALCIUM [Concomitant]
  8. IBUPROFEN [Concomitant]
  9. PROVELLA-14 [Concomitant]
  10. PAROXETINE HYDROCHLORIDE [Concomitant]
  11. CLONAZEPAM [Concomitant]
  12. LORAZEPAM [Concomitant]

REACTIONS (8)
  - AMNESIA [None]
  - GRAND MAL CONVULSION [None]
  - GROIN PAIN [None]
  - HEPATOCELLULAR DAMAGE [None]
  - MULTI-ORGAN FAILURE [None]
  - OVERDOSE [None]
  - PAIN [None]
  - SKIN ULCER [None]
